FAERS Safety Report 15678228 (Version 1)
Quarter: 2018Q4

REPORT INFORMATION
  Report Type: Spontaneous
  Country: DE (occurrence: DE)
  Receive Date: 20181201
  Receipt Date: 20181201
  Transmission Date: 20190205
  Serious: Yes (Other)
  Sender: FDA-Public Use
  Company Number: DE-DRREDDYS-GER/GER/18/0105746

PATIENT
  Age: 41 Year
  Sex: Male

DRUGS (1)
  1. IBUPROFEN. [Suspect]
     Active Substance: IBUPROFEN
     Indication: MUSCULOSKELETAL PAIN
     Dosage: 400 MG, TID
     Route: 065

REACTIONS (6)
  - Optic neuritis [Not Recovered/Not Resolved]
  - Eye pain [Recovered/Resolved]
  - Visual field defect [Unknown]
  - Visual acuity reduced [Recovering/Resolving]
  - Visual evoked potentials abnormal [Recovering/Resolving]
  - Vision blurred [Not Recovered/Not Resolved]
